FAERS Safety Report 10251229 (Version 1)
Quarter: 2014Q2

REPORT INFORMATION
  Report Type: Spontaneous
  Country: US (occurrence: US)
  Receive Date: 20140621
  Receipt Date: 20140621
  Transmission Date: 20141212
  Serious: Yes (Hospitalization, Other)
  Sender: FDA-Public Use
  Company Number: US-GILEAD-2014-0106228

PATIENT
  Age: 64 Year
  Sex: Female

DRUGS (9)
  1. LETAIRIS [Suspect]
     Indication: PULMONARY ARTERIAL HYPERTENSION
     Dosage: 5 MG, QD
     Route: 048
     Dates: start: 20140220
  2. FUROSEMIDE [Concomitant]
  3. ATORVASTATIN [Concomitant]
  4. HYDROXYCHLOROQUINE [Concomitant]
  5. ASPIRIN (E.C.) [Concomitant]
  6. METOLAZONE [Concomitant]
  7. IRON SULFATE [Concomitant]
  8. SILDENAFIL [Concomitant]
  9. PREDNISONE [Concomitant]

REACTIONS (6)
  - Blood bilirubin increased [Recovering/Resolving]
  - Cholecystitis [Recovering/Resolving]
  - Lactose intolerance [Unknown]
  - Diarrhoea [Unknown]
  - Nausea [Unknown]
  - Asthenia [Unknown]
